FAERS Safety Report 13452608 (Version 1)
Quarter: 2017Q2

REPORT INFORMATION
  Report Type: Spontaneous
  Country: US (occurrence: US)
  Receive Date: 20170418
  Receipt Date: 20170418
  Transmission Date: 20170830
  Serious: Yes (Life-Threatening, Other)
  Sender: FDA-Public Use
  Company Number: US-GLAXOSMITHKLINE-US2017GSK054964

PATIENT
  Age: 65 Year
  Sex: Female

DRUGS (13)
  1. WELLBUTRIN XL [Suspect]
     Active Substance: BUPROPION HYDROCHLORIDE
  2. CULTURELLE [Concomitant]
     Active Substance: LACTOBACILLUS RHAMNOSUS
     Dosage: 1 DF, 1D
     Route: 048
     Dates: start: 20170207
  3. ROBAXIN [Concomitant]
     Active Substance: METHOCARBAMOL
     Dosage: 500 MG, TID
     Dates: start: 20170207
  4. ESTRADIOL. [Suspect]
     Active Substance: ESTRADIOL
  5. HYDROXYZINE HYDROCHLORIDE. [Concomitant]
     Active Substance: HYDROXYZINE HYDROCHLORIDE
     Route: 048
  6. CARDIZEM [Suspect]
     Active Substance: DILTIAZEM HYDROCHLORIDE
  7. METFORMIN [Suspect]
     Active Substance: METFORMIN HYDROCHLORIDE
  8. SKELAXIN [Concomitant]
     Active Substance: METAXALONE
     Dosage: 800 MG, PRN
     Dates: start: 20170207
  9. ASPIRIN EC [Concomitant]
     Active Substance: ASPIRIN
     Dosage: 81 MG, QD
     Route: 048
     Dates: start: 20170207
  10. AZO CRANBERRY [Concomitant]
     Active Substance: DIETARY SUPPLEMENT
     Dosage: 1 DF, TID
     Dates: start: 20170207
  11. PROZAC [Concomitant]
     Active Substance: FLUOXETINE HYDROCHLORIDE
     Dosage: 1 DF, 1D AT NOON
     Route: 048
     Dates: start: 20170207
  12. PROZAC [Concomitant]
     Active Substance: FLUOXETINE HYDROCHLORIDE
     Dosage: 2 DF, 1D IN MORNING
     Route: 048
     Dates: start: 20170207
  13. TRIMETHOPRIM. [Concomitant]
     Active Substance: TRIMETHOPRIM
     Dosage: 100 MG, QD
     Route: 048
     Dates: start: 20170306

REACTIONS (15)
  - Pharyngeal oedema [Unknown]
  - Joint swelling [Unknown]
  - Chest discomfort [Unknown]
  - Diarrhoea [Unknown]
  - Chest pain [Unknown]
  - Thrombosis [Unknown]
  - Palpitations [Unknown]
  - Pain in extremity [Unknown]
  - Abdominal pain upper [Unknown]
  - Nausea [Unknown]
  - Hypersensitivity [Unknown]
  - Mouth ulceration [Unknown]
  - Vomiting [Unknown]
  - Cardiac failure congestive [Unknown]
  - Glossodynia [Unknown]

NARRATIVE: CASE EVENT DATE: 20170207
